FAERS Safety Report 19164858 (Version 2)
Quarter: 2021Q2

REPORT INFORMATION
  Report Type: Report from Study
  Country: EG (occurrence: EG)
  Receive Date: 20210421
  Receipt Date: 20210504
  Transmission Date: 20210717
  Serious: Yes (Other)
  Sender: FDA-Public Use
  Company Number: NVSC2021EG086227

PATIENT
  Age: 60 Year
  Sex: Male

DRUGS (5)
  1. AFINITOR [Suspect]
     Active Substance: EVEROLIMUS
     Indication: METASTASES TO SPLEEN
     Dosage: 1 DF, QD
     Route: 048
     Dates: start: 20210110, end: 202103
  2. NEXIUM [Concomitant]
     Active Substance: ESOMEPRAZOLE MAGNESIUM
     Indication: GASTRIC DISORDER
     Dosage: 2 DF, QD
     Route: 065
     Dates: start: 2018
  3. AFINITOR [Suspect]
     Active Substance: EVEROLIMUS
     Indication: METASTASES TO PELVIS
  4. AFINITOR [Suspect]
     Active Substance: EVEROLIMUS
     Indication: METASTASES TO BREAST
  5. AFINITOR [Suspect]
     Active Substance: EVEROLIMUS
     Indication: METASTATIC LYMPHOMA

REACTIONS (4)
  - Drug ineffective [Not Recovered/Not Resolved]
  - Product use in unapproved indication [Unknown]
  - Metastases to pelvis [Not Recovered/Not Resolved]
  - Metastases to neck [Not Recovered/Not Resolved]

NARRATIVE: CASE EVENT DATE: 202103
